FAERS Safety Report 14695034 (Version 1)
Quarter: 2018Q1

REPORT INFORMATION
  Report Type: Spontaneous
  Country: US (occurrence: US)
  Receive Date: 20180329
  Receipt Date: 20180329
  Transmission Date: 20180509
  Serious: Yes (Hospitalization)
  Sender: FDA-Public Use
  Company Number: US-LEXICON PHARMACEUTICALS, INC-18-1606-00313

PATIENT
  Age: 52 Year
  Sex: Female

DRUGS (14)
  1. TELOTRISTAT ETHYL [Suspect]
     Active Substance: TELOTRISTAT ETHYL
     Indication: CARCINOID SYNDROME
     Route: 048
     Dates: start: 20170510
  2. LOPERAMIDE [Concomitant]
     Active Substance: LOPERAMIDE
  3. PANCRELIPASE. [Concomitant]
     Active Substance: PANCRELIPASE
  4. SANDOSTATIN LAR DEPOT [Concomitant]
     Active Substance: OCTREOTIDE ACETATE
  5. ONDANSETRON [Concomitant]
     Active Substance: ONDANSETRON
  6. CAPECITABINE. [Concomitant]
     Active Substance: CAPECITABINE
  7. HYOSCYAMINE. [Concomitant]
     Active Substance: HYOSCYAMINE
  8. IBUPROFEN. [Concomitant]
     Active Substance: IBUPROFEN
  9. MULTIVITAMIN [Concomitant]
     Active Substance: VITAMINS
  10. PROCHLORPERAZINE. [Concomitant]
     Active Substance: PROCHLORPERAZINE
  11. OCTREOTIDE. [Concomitant]
     Active Substance: OCTREOTIDE
  12. TEMOZOLOMIDE. [Concomitant]
     Active Substance: TEMOZOLOMIDE
  13. MIRALAX [Concomitant]
     Active Substance: POLYETHYLENE GLYCOL 3350
  14. VIACTIV [Concomitant]
     Active Substance: CALCIUM\VITAMIN D\VITAMIN K5

REACTIONS (3)
  - Blood glucose increased [Unknown]
  - Therapeutic embolisation [Recovering/Resolving]
  - Therapeutic embolisation [Recovering/Resolving]

NARRATIVE: CASE EVENT DATE: 20180116
